FAERS Safety Report 7087989-X (Version None)
Quarter: 2010Q4

REPORT INFORMATION
  Report Type: 
  Country: None (occurrence: None)
  Receive Date: 20101108
  Receipt Date: 20101102
  Transmission Date: 20110411
  Serious: Yes (Life-Threatening)
  Sender: FDA-Public Use
  Company Number: FR-BRISTOL-MYERS SQUIBB COMPANY-15365141

PATIENT
  Age: 78 Year
  Sex: Female

DRUGS (1)
  1. COUMADIN [Suspect]
     Indication: ARRHYTHMIA
     Dosage: 3 TABS PER DAY
     Route: 048
     Dates: start: 20100929, end: 20101003

REACTIONS (1)
  - DRUG RASH WITH EOSINOPHILIA AND SYSTEMIC SYMPTOMS [None]
